FAERS Safety Report 23369906 (Version 1)
Quarter: 2024Q1

REPORT INFORMATION
  Report Type: Spontaneous
  Country: CN (occurrence: CN)
  Receive Date: 20240105
  Receipt Date: 20240105
  Transmission Date: 20240409
  Serious: Yes (Disabling)
  Sender: FDA-Public Use
  Company Number: CN-SA-SAC20240104000897

PATIENT
  Age: 71 Year
  Sex: Male
  Weight: 63 kg

DRUGS (4)
  1. ELOXATIN [Suspect]
     Active Substance: OXALIPLATIN
     Indication: Pancreatic carcinoma
     Dosage: 130 MG, QD
     Route: 041
     Dates: start: 20231208, end: 20231208
  2. FLUOROURACIL [Suspect]
     Active Substance: FLUOROURACIL
     Indication: Pancreatic carcinoma
     Dosage: 0.6 G, QD
     Route: 041
     Dates: start: 20231208, end: 20231208
  3. FLUOROURACIL [Suspect]
     Active Substance: FLUOROURACIL
     Dosage: 3.6 G, QD
     Route: 041
     Dates: start: 20231208, end: 20231210
  4. LEUCOVORIN CALCIUM [Concomitant]
     Active Substance: LEUCOVORIN CALCIUM
     Indication: Pancreatic carcinoma
     Dosage: 380 MG QD
     Route: 041
     Dates: start: 20231208, end: 20231208

REACTIONS (2)
  - General physical health deterioration [Unknown]
  - Platelet count decreased [Unknown]

NARRATIVE: CASE EVENT DATE: 20231215
